FAERS Safety Report 11217618 (Version 1)
Quarter: 2015Q2

REPORT INFORMATION
  Report Type: Spontaneous
  Country: IL (occurrence: IL)
  Receive Date: 20150625
  Receipt Date: 20150625
  Transmission Date: 20150821
  Serious: Yes (Hospitalization)
  Sender: FDA-Public Use
  Company Number: IL-TARO PHARMACEUTICALS U.S.A., INC-2015SUN01489

PATIENT

DRUGS (2)
  1. ETOPAN 500 MG TABLETS [Suspect]
     Active Substance: ETODOLAC
     Indication: ARTHRALGIA
     Dosage: 500 MG, QD
     Route: 048
     Dates: start: 201504, end: 201504
  2. CALCIUM AND VITAMIN D [Concomitant]
     Active Substance: CALCIUM\VITAMIN D

REACTIONS (1)
  - Photopsia [Not Recovered/Not Resolved]

NARRATIVE: CASE EVENT DATE: 201504
